FAERS Safety Report 8621347-9 (Version None)
Quarter: 2012Q3

REPORT INFORMATION
  Report Type: 
  Country: None (occurrence: None)
  Receive Date: 20120824
  Receipt Date: 20120823
  Transmission Date: 20120928
  Serious: Yes (Death)
  Sender: FDA-Public Use
  Company Number: US-PFIZER INC-2012146346

PATIENT
  Age: 90 Year
  Sex: Female

DRUGS (2)
  1. REVATIO [Suspect]
     Indication: PULMONARY HYPERTENSION
     Dosage: 20 MG, 3X/DAY
     Route: 048
     Dates: start: 20101001
  2. REVATIO [Suspect]
     Indication: INTERSTITIAL LUNG DISEASE

REACTIONS (1)
  - INTERSTITIAL LUNG DISEASE [None]
